FAERS Safety Report 17100193 (Version 1)
Quarter: 2019Q4

REPORT INFORMATION
  Report Type: Spontaneous
  Country: US (occurrence: US)
  Receive Date: 20191106
  Receipt Date: 20191106
  Transmission Date: 20200122
  Serious: Yes (Hospitalization)
  Sender: FDA-Public Use
  Company Number: None

PATIENT
  Age: 79 Year
  Sex: Female

DRUGS (10)
  1. ACITRETIN. [Concomitant]
     Active Substance: ACITRETIN
  2. AMBIEN [Concomitant]
     Active Substance: ZOLPIDEM TARTRATE
  3. OXYIR [Concomitant]
     Active Substance: OXYCODONE HYDROCHLORIDE
  4. METOPROL SUC [Concomitant]
  5. LEVOTHYROXIN [Concomitant]
     Active Substance: LEVOTHYROXINE
  6. ZOLOFT [Concomitant]
     Active Substance: SERTRALINE HYDROCHLORIDE
  7. ESTRACE [Concomitant]
     Active Substance: ESTRADIOL
  8. HUMIRA [Suspect]
     Active Substance: ADALIMUMAB
  9. ESTRADIOL. [Concomitant]
     Active Substance: ESTRADIOL
  10. OXYCONTIN [Concomitant]
     Active Substance: OXYCODONE HYDROCHLORIDE

REACTIONS (2)
  - Upper limb fracture [None]
  - Fall [None]

NARRATIVE: CASE EVENT DATE: 20190922
